FAERS Safety Report 4389908-3 (Version None)
Quarter: 2004Q2

REPORT INFORMATION
  Report Type: 
  Country: None (occurrence: None)
  Receive Date: 20040630
  Receipt Date: 20040630
  Transmission Date: 20050107
  Serious: No
  Sender: FDA-Public Use
  Company Number: None

PATIENT
  Age: 18 Year
  Sex: Male

DRUGS (2)
  1. DEFEROXAMINE 500MG AND 2000MG VIAL [Suspect]
     Indication: CHELATION THERAPY
     Dosage: 2000 MG SQ 3 TIMES PER WEEK
     Route: 058
     Dates: start: 20040518, end: 20040628
  2. DEFEROXAMINE 500MG AND 2000MG VIAL [Suspect]

REACTIONS (3)
  - CONTUSION [None]
  - ERYTHEMA [None]
  - INJECTION SITE PAIN [None]
